FAERS Safety Report 16993566 (Version 2)
Quarter: 2020Q1

REPORT INFORMATION
  Report Type: Spontaneous
  Country: US (occurrence: US)
  Receive Date: 20191105
  Receipt Date: 20200109
  Transmission Date: 20200409
  Serious: No
  Sender: FDA-Public Use
  Company Number: US-PFIZER INC-2019072604

PATIENT
  Age: 40 Year
  Sex: Female

DRUGS (4)
  1. XELJANZ [Suspect]
     Active Substance: TOFACITINIB CITRATE
     Indication: ABSCESS
     Dosage: 5 MG, UNK
  2. XELJANZ [Suspect]
     Active Substance: TOFACITINIB CITRATE
     Indication: COLITIS ULCERATIVE
  3. XELJANZ [Suspect]
     Active Substance: TOFACITINIB CITRATE
     Indication: DIVERTICULITIS
     Dosage: 10 MG, UNK
  4. XELJANZ [Suspect]
     Active Substance: TOFACITINIB CITRATE
     Indication: INTESTINAL PERFORATION
     Dosage: 5 MG, 2X/DAY[1 TABLET TWICE A DAY BY MOUTH]
     Route: 048

REACTIONS (2)
  - Fatigue [Unknown]
  - Irritability [Unknown]
